FAERS Safety Report 13756931 (Version 1)
Quarter: 2017Q3

REPORT INFORMATION
  Report Type: Report from Study
  Country: None (occurrence: US)
  Receive Date: 20170714
  Receipt Date: 20170714
  Transmission Date: 20171127
  Serious: Yes (Other)
  Sender: FDA-Public Use
  Company Number: US-ABBVIE-17P-163-2032258-00

PATIENT
  Sex: Male

DRUGS (4)
  1. VELCADE [Concomitant]
     Active Substance: BORTEZOMIB
     Indication: PLASMA CELL MYELOMA
  2. VENCLEXTA [Suspect]
     Active Substance: VENETOCLAX
     Indication: PLASMA CELL MYELOMA
  3. VELCADE [Concomitant]
     Active Substance: BORTEZOMIB
     Indication: AMYLOIDOSIS
  4. VENCLEXTA [Suspect]
     Active Substance: VENETOCLAX
     Indication: AMYLOIDOSIS
     Route: 048
     Dates: end: 20170524

REACTIONS (2)
  - Weight decreased [Not Recovered/Not Resolved]
  - Fatigue [Not Recovered/Not Resolved]
